FAERS Safety Report 16985233 (Version 1)
Quarter: 2019Q4

REPORT INFORMATION
  Report Type: Spontaneous
  Country: US (occurrence: US)
  Receive Date: 20190917
  Receipt Date: 20190917
  Transmission Date: 20200122
  Serious: Yes (Hospitalization)
  Sender: FDA-Public Use
  Company Number: None

PATIENT
  Age: 84 Year
  Sex: Male
  Weight: 72.57 kg

DRUGS (2)
  1. LEUPROLIDE ACETATE. [Suspect]
     Active Substance: LEUPROLIDE ACETATE
     Dates: end: 20160328
  2. CASODEX [Suspect]
     Active Substance: BICALUTAMIDE
     Dates: end: 20160328

REACTIONS (5)
  - Rectal haemorrhage [None]
  - Haemorrhoids [None]
  - Diverticulum intestinal [None]
  - Radiation proctitis [None]
  - Large intestine polyp [None]

NARRATIVE: CASE EVENT DATE: 20190831
